FAERS Safety Report 6100648-2 (Version None)
Quarter: 2009Q1

REPORT INFORMATION
  Report Type: 
  Country: None (occurrence: None)
  Receive Date: 20090227
  Receipt Date: 20090227
  Transmission Date: 20090719
  Serious: Yes (Other)
  Sender: FDA-Public Use
  Company Number: None

PATIENT
  Age: 55 Year
  Sex: Female
  Weight: 81.6475 kg

DRUGS (2)
  1. AZITHROMYCIN [Suspect]
     Indication: BRONCHITIS
     Dosage: 2 TABLETS ON DAY 1 ONCE A DAY PO 1 TABLET ON DAYS 2-5 ONCE A DAY PO
     Route: 048
     Dates: start: 20090223, end: 20090225
  2. AZITHROMYCIN [Suspect]
     Indication: SINUSITIS
     Dosage: 2 TABLETS ON DAY 1 ONCE A DAY PO 1 TABLET ON DAYS 2-5 ONCE A DAY PO
     Route: 048
     Dates: start: 20090223, end: 20090225

REACTIONS (7)
  - ABDOMINAL PAIN [None]
  - BACK PAIN [None]
  - BLISTER [None]
  - DEHYDRATION [None]
  - DIARRHOEA [None]
  - FATIGUE [None]
  - RASH [None]
